FAERS Safety Report 24244557 (Version 1)
Quarter: 2024Q3

REPORT INFORMATION
  Report Type: Spontaneous
  Country: US (occurrence: US)
  Receive Date: 20240823
  Receipt Date: 20240823
  Transmission Date: 20241017
  Serious: Yes (Hospitalization, Other)
  Sender: FRESENIUS KABI
  Company Number: US-FreseniusKabi-FK202412819

PATIENT
  Age: 59 Year
  Sex: Female

DRUGS (2)
  1. BUPIVACAINE [Suspect]
     Active Substance: BUPIVACAINE
     Indication: Occipital neuralgia
     Dosage: FORM OF ADMINISTRATION: INJECTION AT TRIGGER POINTS INTO BILATERAL GREATER OCCIPITAL NERVES AND TRAP
  2. BUPIVACAINE [Suspect]
     Active Substance: BUPIVACAINE
     Indication: Myofascial pain syndrome
     Dosage: FORM OF ADMINISTRATION: INJECTION

REACTIONS (2)
  - Acute myocardial infarction [Recovering/Resolving]
  - Left ventricular dysfunction [Recovering/Resolving]
